FAERS Safety Report 9310907 (Version 2)
Quarter: 2013Q3

REPORT INFORMATION
  Report Type: Spontaneous
  Country: US (occurrence: US)
  Receive Date: 20130528
  Receipt Date: 20130704
  Transmission Date: 20140515
  Serious: No
  Sender: FDA-Public Use
  Company Number: US-009507513-1305USA011892

PATIENT
  Age: 42 Year
  Sex: Female
  Weight: 99.77 kg

DRUGS (7)
  1. VICTRELIS [Suspect]
     Dosage: TAKE 4 CAPSULES(800MG) BY MOUTH EVERY 8 HOURS START ON DAY 28
     Route: 048
  2. PEGASYS [Suspect]
     Dosage: 180 MICROGRAM/0.5ML, QM
  3. REBETOL [Suspect]
     Route: 048
  4. ZOLOFT [Concomitant]
  5. ALLEGRA-D 24 HOUR [Concomitant]
  6. CORTISONE [Concomitant]
  7. TYLENOL [Concomitant]

REACTIONS (7)
  - Insomnia [Unknown]
  - Restless legs syndrome [Unknown]
  - Headache [Unknown]
  - Rash [Unknown]
  - Lower extremity mass [Unknown]
  - White blood cell count decreased [Unknown]
  - Red blood cell count decreased [Unknown]
